FAERS Safety Report 7948114-3 (Version None)
Quarter: 2011Q4

REPORT INFORMATION
  Report Type: 
  Country: None (occurrence: None)
  Receive Date: 20111125
  Receipt Date: 20111108
  Transmission Date: 20120403
  Serious: Yes (Death)
  Sender: FDA-Public Use
  Company Number: FK201102675

PATIENT
  Age: 33 Year
  Sex: Female

DRUGS (9)
  1. DOXORUBICIN HCL [Suspect]
     Indication: BREAST CANCER
  2. TRASTUZUMAB (TRASTUZUMAB) [Suspect]
     Indication: BREAST CANCER
  3. FENTANYL [Concomitant]
  4. PACLITAXEL [Suspect]
     Indication: BREAST CANCER
  5. FUROSEMIDE [Concomitant]
  6. CYCLOPHOSPHAMIDE [Suspect]
     Indication: BREAST CANCER
  7. GEMCITABINE [Suspect]
     Indication: BREAST CANCER
  8. CARBOPLATIN [Suspect]
     Indication: BREAST CANCER
  9. ALDACTONE (ALDACTONE) (ALDACTONE) [Concomitant]

REACTIONS (2)
  - HEPATIC CIRRHOSIS [None]
  - HEPATIC FAILURE [None]
